FAERS Safety Report 10203923 (Version 1)
Quarter: 2014Q2

REPORT INFORMATION
  Report Type: Spontaneous
  Country: GB (occurrence: GB)
  Receive Date: 20140529
  Receipt Date: 20140529
  Transmission Date: 20141212
  Serious: Yes (Life-Threatening, Hospitalization)
  Sender: FDA-Public Use
  Company Number: PHHY2014GB064721

PATIENT
  Age: 57 Year
  Sex: 0
  Weight: 55 kg

DRUGS (17)
  1. METHOTREXATE [Suspect]
     Indication: VASCULITIS
     Dosage: 15 MG, QW
     Route: 048
     Dates: start: 20140313, end: 20140410
  2. METHOTREXATE [Suspect]
     Dosage: 20 MG, QW
     Route: 048
     Dates: start: 20140410, end: 20140420
  3. ADCAL-D3 [Concomitant]
  4. ALENDRONIC ACID [Concomitant]
  5. ASPIRIN [Concomitant]
     Dosage: 75 MG, QD
  6. BECLOMETASONE [Concomitant]
     Route: 055
  7. BUPRENORPHINE [Concomitant]
  8. CELECOXIB [Concomitant]
  9. CO-CODAMOL [Concomitant]
  10. DOMPERIDONE [Concomitant]
  11. FERROUS FUMARATE [Concomitant]
  12. FOLIC ACID [Concomitant]
  13. LANSOPRAZOLE [Concomitant]
  14. OMEPRAZOLE [Concomitant]
  15. PREDNISOLONE [Concomitant]
     Dosage: 35 MG, QD
  16. RAMIPRIL [Concomitant]
     Dosage: 1.25 MG, QD
  17. SALBUTAMOL [Concomitant]

REACTIONS (4)
  - Respiratory distress [Recovering/Resolving]
  - Acute lung injury [Recovering/Resolving]
  - Dyspnoea [Recovering/Resolving]
  - Pneumocystis jirovecii pneumonia [Recovering/Resolving]
